FAERS Safety Report 9805623 (Version 4)
Quarter: 2015Q2

REPORT INFORMATION
  Report Type: Report from Study
  Country: US (occurrence: US)
  Receive Date: 20140109
  Receipt Date: 20150521
  Transmission Date: 20150821
  Serious: Yes (Hospitalization, Other)
  Sender: FDA-Public Use
  Company Number: US-SA-2014SA000517

PATIENT
  Age: 24 Year
  Sex: Female
  Weight: 229 kg

DRUGS (7)
  1. RECLIPSEN [Concomitant]
     Active Substance: DESOGESTREL\ETHINYL ESTRADIOL
     Indication: CONTRACEPTION
     Dosage: PILL
  2. MOTRIN [Concomitant]
     Active Substance: IBUPROFEN
     Indication: PAIN
     Dosage: 2 PILL
  3. AUBAGIO [Suspect]
     Active Substance: TERIFLUNOMIDE
     Indication: MULTIPLE SCLEROSIS
     Route: 048
     Dates: start: 20130105
  4. VENTOLINE [Concomitant]
     Active Substance: ALBUTEROL
     Dosage: 2 PUFF
  5. ZYRTEC [Concomitant]
     Active Substance: CETIRIZINE HYDROCHLORIDE
     Indication: HYPERSENSITIVITY
     Dosage: 1 PILL
  6. TIZANIDINE HYDROCHLORIDE. [Concomitant]
     Active Substance: TIZANIDINE HYDROCHLORIDE
     Dosage: 1 PILL TWICE A DAY OR WHEN NEEDED (FOR MS RELATED PAIN)
  7. AMITRIPTYLINE [Concomitant]
     Active Substance: AMITRIPTYLINE
     Dosage: TWO TABLETS (PILLS) AT BEDTIME. (FOR ARM/LEG SPASMS AND TEMPER)

REACTIONS (8)
  - Movement disorder [Recovering/Resolving]
  - Asthma [Unknown]
  - Headache [Recovering/Resolving]
  - Rheumatoid arthritis [Unknown]
  - Muscle disorder [Recovering/Resolving]
  - Memory impairment [Recovering/Resolving]
  - Nausea [Recovered/Resolved]
  - Gait disturbance [Unknown]

NARRATIVE: CASE EVENT DATE: 20130110
